FAERS Safety Report 11752773 (Version 1)
Quarter: 2015Q4

REPORT INFORMATION
  Report Type: Spontaneous
  Country: CZ (occurrence: CZ)
  Receive Date: 20151119
  Receipt Date: 20151119
  Transmission Date: 20160304
  Serious: Yes (Other)
  Sender: FDA-Public Use
  Company Number: CZ-ACCORD-035457

PATIENT
  Age: 2 Year
  Sex: Female

DRUGS (2)
  1. TOPOTECAN/TOPOTECAN HYDROCHLORIDE [Suspect]
     Active Substance: TOPOTECAN\TOPOTECAN HYDROCHLORIDE
     Indication: RETINOBLASTOMA
     Route: 013
  2. CARBOPLATIN. [Suspect]
     Active Substance: CARBOPLATIN
     Indication: RETINOBLASTOMA
     Route: 013

REACTIONS (5)
  - Arterial spasm [Unknown]
  - Embolism [Unknown]
  - Off label use [Unknown]
  - Transient ischaemic attack [Unknown]
  - Paresis [Unknown]
